FAERS Safety Report 23976708 (Version 3)
Quarter: 2025Q1

REPORT INFORMATION
  Report Type: Spontaneous
  Country: JP (occurrence: JP)
  Receive Date: 20240614
  Receipt Date: 20250226
  Transmission Date: 20250409
  Serious: Yes (Other)
  Sender: ALEXION PHARMACEUTICALS
  Company Number: 2024A092445

PATIENT
  Age: 51 Year
  Weight: 73 kg

DRUGS (5)
  1. FASLODEX [Suspect]
     Active Substance: FULVESTRANT
     Indication: Breast cancer female
     Dosage: 500 MILLIGRAM, UNK, FREQUENCY: Q4WK
  2. FASLODEX [Suspect]
     Active Substance: FULVESTRANT
  3. VERZENIO [Suspect]
     Active Substance: ABEMACICLIB
     Indication: Breast cancer female
     Dosage: 150 MILLIGRAM, BID
  4. VERZENIO [Suspect]
     Active Substance: ABEMACICLIB
  5. LEUPLIN [Concomitant]
     Active Substance: LEUPROLIDE ACETATE
     Indication: Breast cancer female

REACTIONS (3)
  - Interstitial lung disease [Recovering/Resolving]
  - Skin ulcer [Recovered/Resolved]
  - Skin weeping [Unknown]
